FAERS Safety Report 13699371 (Version 1)
Quarter: 2017Q2

REPORT INFORMATION
  Report Type: Spontaneous
  Country: DE (occurrence: DE)
  Receive Date: 20170628
  Receipt Date: 20170628
  Transmission Date: 20170830
  Serious: Yes (Congenital Anomaly)
  Sender: FDA-Public Use
  Company Number: DE-MEDA-2017060047

PATIENT
  Age: 1 Day
  Sex: Female
  Weight: 1 kg

DRUGS (10)
  1. ASS 10 MG [Concomitant]
  2. CARVEDILOL. [Suspect]
     Active Substance: CARVEDILOL
     Route: 064
  3. AZATHIOPRINE. [Suspect]
     Active Substance: AZATHIOPRINE
     Route: 064
  4. PREDNISOLON [Concomitant]
     Active Substance: PREDNISOLONE
  5. VIGANTOLETTEN 100IU [Concomitant]
  6. LOSARTAN. [Suspect]
     Active Substance: LOSARTAN
     Route: 064
  7. PANTOPRAZOLE [Concomitant]
     Active Substance: PANTOPRAZOLE
  8. TORASEMIDE 5 MG [Suspect]
     Active Substance: TORSEMIDE
     Route: 064
  9. VITAMIN B12 [Concomitant]
     Active Substance: CYANOCOBALAMIN
  10. CELESTAN [Concomitant]
     Active Substance: BETAMETHASONE

REACTIONS (4)
  - Right aortic arch [Not Recovered/Not Resolved]
  - Ventricular septal defect [Not Recovered/Not Resolved]
  - Atrial septal defect [Unknown]
  - Foetal exposure during pregnancy [Recovered/Resolved]

NARRATIVE: CASE EVENT DATE: 20170131
